FAERS Safety Report 7795929-0 (Version None)
Quarter: 2011Q4

REPORT INFORMATION
  Report Type: 
  Country: None (occurrence: None)
  Receive Date: 20111004
  Receipt Date: 20110923
  Transmission Date: 20120403
  Serious: No
  Sender: FDA-Public Use
  Company Number: US-B.I. PHARMACEUTICALS,INC./RIDGEFIELD-2011-BP-20733BP

PATIENT
  Age: 76 Year
  Sex: Male
  Weight: 117.48 kg

DRUGS (9)
  1. LISINOPRIL AND HYDROCHLOROTHIAZIDE [Concomitant]
     Route: 048
  2. MACROBID [Concomitant]
     Dosage: 100 MG
     Route: 048
  3. ALBUTEROL [Concomitant]
     Indication: COUGH
  4. ALBUTEROL [Concomitant]
     Indication: WHEEZING
  5. FLECAINIDE ACETATE [Concomitant]
     Dosage: 100 MG
     Route: 048
  6. PRADAXA [Suspect]
     Dates: end: 20110819
  7. LOVASTATIN [Concomitant]
     Dosage: 40 MG
     Route: 048
  8. ATENOLOL [Concomitant]
     Dosage: 100 MG
     Route: 048
  9. AMLODIPINE [Concomitant]
     Dosage: 10 MG
     Route: 048

REACTIONS (3)
  - DYSPNOEA [None]
  - DIZZINESS [None]
  - CHEST DISCOMFORT [None]
